FAERS Safety Report 15319828 (Version 1)
Quarter: 2018Q3

REPORT INFORMATION
  Report Type: Spontaneous
  Country: US (occurrence: US)
  Receive Date: 20180820
  Receipt Date: 20180820
  Transmission Date: 20181010
  Serious: Yes (Disabling)
  Sender: FDA-Public Use
  Company Number: None

PATIENT
  Age: 67 Year
  Sex: Female
  Weight: 63 kg

DRUGS (15)
  1. BUPROPION HCL XL 300 MG TABLET [Suspect]
     Active Substance: BUPROPION HYDROCHLORIDE
     Indication: DEPRESSION
     Dosage: ?          QUANTITY:1 TABLET(S);?
     Route: 048
     Dates: start: 20180725, end: 20180820
  2. MSM [Concomitant]
     Active Substance: DIMETHYL SULFONE
  3. ZINC. [Concomitant]
     Active Substance: ZINC
  4. PRISTIQ EXTENDED?RELEASE [Concomitant]
     Active Substance: DESVENLAFAXINE SUCCINATE
  5. BIOTIN [Concomitant]
     Active Substance: BIOTIN
  6. K2 [Concomitant]
     Active Substance: JWH-018
  7. HYALURONIC ACID [Concomitant]
     Active Substance: HYALURONIC ACID
  8. NIACIN. [Concomitant]
     Active Substance: NIACIN
  9. CALCIUM [Concomitant]
     Active Substance: CALCIUM
  10. MAGNESIUM [Concomitant]
     Active Substance: MAGNESIUM
  11. VITAMIN C [Concomitant]
     Active Substance: ASCORBIC ACID
  12. MANGANESE [Concomitant]
     Active Substance: MANGANESE\MANGANESE CHLORIDE
  13. VITAMINS/MINERALS D3 B50 COMPLEX [Concomitant]
  14. SYNTHROID [Concomitant]
     Active Substance: LEVOTHYROXINE SODIUM
  15. METHYLPHENIDATE CD [Concomitant]
     Active Substance: METHYLPHENIDATE HYDROCHLORIDE

REACTIONS (10)
  - Disturbance in attention [None]
  - Depressed mood [None]
  - Fatigue [None]
  - Drug ineffective [None]
  - Headache [None]
  - Apathy [None]
  - Product substitution issue [None]
  - Therapeutic response changed [None]
  - Amnesia [None]
  - Increased appetite [None]

NARRATIVE: CASE EVENT DATE: 20180801
